FAERS Safety Report 7866308-2 (Version None)
Quarter: 2011Q4

REPORT INFORMATION
  Report Type: 
  Country: None (occurrence: None)
  Receive Date: 20111028
  Receipt Date: 20110308
  Transmission Date: 20120403
  Serious: No
  Sender: FDA-Public Use
  Company Number: US-MYLANLABS-2011S1003635

PATIENT
  Age: 57 Year
  Sex: Female
  Weight: 102.51 kg

DRUGS (3)
  1. ACTOS [Concomitant]
     Indication: DIABETES MELLITUS
     Dates: start: 20060101
  2. METFORMIN HCL [Concomitant]
     Indication: DIABETES MELLITUS
     Dates: start: 20060101
  3. DIAZEPAM [Suspect]
     Indication: MUSCLE SPASMS
     Route: 048
     Dates: start: 20101212, end: 20101213

REACTIONS (3)
  - MUSCLE SPASMS [None]
  - INAPPROPRIATE SCHEDULE OF DRUG ADMINISTRATION [None]
  - DRUG INEFFECTIVE [None]
